FAERS Safety Report 4661955-3 (Version None)
Quarter: 2005Q2

REPORT INFORMATION
  Report Type: 
  Country: None (occurrence: None)
  Receive Date: 20050511
  Receipt Date: 20050511
  Transmission Date: 20051028
  Serious: Yes (Hospitalization)
  Sender: FDA-Public Use
  Company Number: None

PATIENT
  Age: 85 Year
  Sex: Male

DRUGS (10)
  1. ATENOLOL [Suspect]
     Indication: HYPERTENSION
     Dosage: 50 MG QD
     Dates: start: 19991201
  2. METFORMIN HCL [Suspect]
     Indication: DIABETES MELLITUS NON-INSULIN-DEPENDENT
     Dosage: 500 MG BID
     Dates: start: 19970901
  3. GLYBURIDE [Suspect]
     Indication: DIABETES MELLITUS NON-INSULIN-DEPENDENT
     Dosage: 5 MG BID
     Dates: start: 19951201
  4. CIPRO [Concomitant]
  5. FOSINOPRIL [Concomitant]
  6. FUROSEMIDE [Concomitant]
  7. PRIMIDONE [Concomitant]
  8. SERTRALINE HCL [Concomitant]
  9. SINEMET [Concomitant]
  10. TERAZOSIN [Concomitant]

REACTIONS (2)
  - HYPOGLYCAEMIA [None]
  - SYNCOPE [None]
